FAERS Safety Report 11408676 (Version 1)
Quarter: 2015Q3

REPORT INFORMATION
  Report Type: Report from Study
  Country: US (occurrence: US)
  Receive Date: 20150822
  Receipt Date: 20150822
  Transmission Date: 20151125
  Serious: No
  Sender: FDA-Public Use
  Company Number: PHEH2015US015081

PATIENT
  Sex: Female
  Weight: 63 kg

DRUGS (1)
  1. GILENYA [Suspect]
     Active Substance: FINGOLIMOD HYDROCHLORIDE
     Indication: MULTIPLE SCLEROSIS
     Dosage: 0.5 MG, QD
     Route: 048
     Dates: start: 20150217

REACTIONS (5)
  - Burning sensation [Unknown]
  - Weight increased [Unknown]
  - Herpes zoster [Unknown]
  - Rash [Unknown]
  - Oral herpes [Unknown]
